FAERS Safety Report 8989201 (Version 3)
Quarter: 2013Q1

REPORT INFORMATION
  Report Type: Spontaneous
  Country: IT (occurrence: None)
  Receive Date: 20121219
  Receipt Date: 20130228
  Transmission Date: 20140127
  Serious: Yes (Hospitalization, Other)
  Sender: FDA-Public Use
  Company Number: AUR-APL-2012-05339

PATIENT
  Age: 32 Year
  Sex: Female

DRUGS (4)
  1. LAMOTRIGINE (LAMOTRIGINE) [Suspect]
     Indication: BIPOLAR II DISORDER
     Dosage: 300 MG, TOTAL
     Route: 048
     Dates: start: 20121128, end: 20121128
  2. ALPRAZOLAM (ALPRAZOLAM) [Suspect]
     Indication: BIPOLAR II DISORDER
     Dosage: 1 GM, TOTAL
     Route: 048
     Dates: start: 20121128, end: 20121128
  3. BUPROPION HYDROBROMIDE [Suspect]
     Indication: BIPOLAR II DISORDER
     Dosage: (450 MG,TOTAL)
     Route: 048
     Dates: start: 20121128, end: 20121128
  4. CHLORPROMAZINE HYDROCHLORIDE [Suspect]
     Indication: BIPOLAR II DISORDER
     Dosage: (150 MG,TOTAL)
     Route: 048
     Dates: start: 20121128, end: 20121128

REACTIONS (5)
  - Psychomotor skills impaired [None]
  - Feelings of worthlessness [None]
  - Feeling of despair [None]
  - Drug abuse [None]
  - Unevaluable event [None]
